FAERS Safety Report 10586458 (Version 1)
Quarter: 2014Q4

REPORT INFORMATION
  Report Type: Spontaneous
  Country: US (occurrence: US)
  Receive Date: 20141117
  Receipt Date: 20141117
  Transmission Date: 20150529
  Serious: Yes (Death, Hospitalization, Other)
  Sender: FDA-Public Use
  Company Number: US-AMGEN-USASP2014085868

PATIENT

DRUGS (3)
  1. PEGINESATIDE [Suspect]
     Active Substance: PEGINESATIDE
     Indication: NEPHROGENIC ANAEMIA
     Dosage: UNK UNK, QMO
     Route: 042
  2. DARBEPOETIN ALFA [Concomitant]
     Active Substance: DARBEPOETIN ALFA
     Dosage: UNK
     Route: 042
  3. PROCRIT [Suspect]
     Active Substance: ERYTHROPOIETIN
     Indication: PRODUCT USED FOR UNKNOWN INDICATION
     Dosage: UNK
     Route: 042

REACTIONS (9)
  - Chronic kidney disease [Unknown]
  - Chest pain [Unknown]
  - Haemoptysis [Unknown]
  - Myocardial infarction [Unknown]
  - Arrhythmia [Unknown]
  - Cardiovascular disorder [Fatal]
  - Arteriosclerosis coronary artery [Unknown]
  - Cardiac failure [Unknown]
  - Atrial fibrillation [Unknown]
